FAERS Safety Report 5587772-8 (Version None)
Quarter: 2008Q1

REPORT INFORMATION
  Report Type: 
  Country: None (occurrence: None)
  Receive Date: 20080103
  Receipt Date: 20071228
  Transmission Date: 20080703
  Serious: Yes (Hospitalization)
  Sender: FDA-Public Use
  Company Number: 200712345

PATIENT
  Age: 34 Year
  Sex: Female
  Weight: 56.6996 kg

DRUGS (29)
  1. VIVAGLOBIN [Suspect]
     Indication: IMMUNODEFICIENCY COMMON VARIABLE
     Dosage: SC
     Route: 058
     Dates: start: 20070201
  2. VIVAGLOBIN [Suspect]
     Dosage: SC
     Route: 058
     Dates: start: 20071022, end: 20071023
  3. VIVAGLOBIN [Suspect]
     Dosage: SC
     Route: 058
     Dates: start: 20071022, end: 20071023
  4. ADVAIR DISKUS 100/50 [Concomitant]
  5. ASTELIN /00085801/ [Concomitant]
  6. CLARINEX /01202601/ [Concomitant]
  7. COMBIVENT /01033501/ [Concomitant]
  8. DUONEB [Concomitant]
  9. EPIPEN /00003901/ [Concomitant]
  10. MAXAIR [Concomitant]
  11. MYCELEX [Concomitant]
  12. PREDNISONE TAB [Concomitant]
  13. PRILOSEC [Concomitant]
  14. RELPAX [Concomitant]
  15. ZOMIG [Concomitant]
  16. SINGULAIR [Concomitant]
  17. SPIRIVA [Concomitant]
  18. XOPENEX [Concomitant]
  19. ACIDOPHILUS [Concomitant]
  20. ADVIL /00109201/ [Concomitant]
  21. BENADRYL [Concomitant]
  22. CALCIUM GLUCONATE [Concomitant]
  23. EXCEDRIN (MIGRAINE) [Concomitant]
  24. POTASSIUM CHLORIDE [Concomitant]
  25. M.V.I. [Concomitant]
  26. ASCORBIC ACID [Concomitant]
  27. FOSAMAX [Concomitant]
  28. IMMUNOTHERAPY ALLERGY INJECTIONS [Concomitant]
  29. YASMIN [Concomitant]

REACTIONS (23)
  - ANXIETY [None]
  - ASTHMA [None]
  - BODY TEMPERATURE INCREASED [None]
  - CELLULITIS [None]
  - CHILLS [None]
  - CONCUSSION [None]
  - CONJUNCTIVITIS [None]
  - ERYTHEMA [None]
  - EYE DISCHARGE [None]
  - EYE INJURY [None]
  - EYE SWELLING [None]
  - FASCIITIS [None]
  - HEAD INJURY [None]
  - HYPOGAMMAGLOBULINAEMIA [None]
  - INJECTION SITE ERYTHEMA [None]
  - INJECTION SITE INFECTION [None]
  - INJECTION SITE PAIN [None]
  - MIGRAINE [None]
  - MUSCLE ATROPHY [None]
  - MYOSITIS [None]
  - OEDEMA PERIPHERAL [None]
  - PAIN [None]
  - PAIN IN EXTREMITY [None]
